FAERS Safety Report 4345356-3 (Version None)
Quarter: 2004Q2

REPORT INFORMATION
  Report Type: 
  Country: None (occurrence: None)
  Receive Date: 20040421
  Receipt Date: 20040412
  Transmission Date: 20050107
  Serious: Yes (Hospitalization)
  Sender: FDA-Public Use
  Company Number: 2004018634

PATIENT
  Age: 10 Year
  Sex: Female
  Weight: 24 kg

DRUGS (7)
  1. NORVASC [Suspect]
     Indication: ILL-DEFINED DISORDER
     Dosage: 5 MG DAILY ORAL
     Route: 048
  2. SPIRONOLACTONE [Suspect]
     Indication: ILL-DEFINED DISORDER
     Dosage: 25 MG DAILY ORAL
     Route: 048
     Dates: start: 19960101
  3. FUROSEMIDE [Concomitant]
  4. CARVEDILOL [Concomitant]
  5. DIGOXIN [Concomitant]
  6. NIFEDIPINE [Concomitant]
  7. SOMATROPIN [Concomitant]

REACTIONS (3)
  - BLOOD IMMUNOGLOBULIN M INCREASED [None]
  - HYPOGAMMAGLOBULINAEMIA [None]
  - PULMONARY HAEMORRHAGE [None]
